FAERS Safety Report 8208772-5 (Version None)
Quarter: 2012Q1

REPORT INFORMATION
  Report Type: 
  Country: None (occurrence: None)
  Receive Date: 20120314
  Receipt Date: 20120313
  Transmission Date: 20120608
  Serious: Yes (Other)
  Sender: FDA-Public Use
  Company Number: US-BAYER-2012-012270

PATIENT
  Age: 45 Year
  Sex: Female
  Weight: 40 kg

DRUGS (10)
  1. VITAMIN D [Concomitant]
     Dosage: 1000 U, UNK
  2. CARBAMAZEPINE [Concomitant]
     Indication: PAIN IN EXTREMITY
     Dosage: 200 MG, QID
     Dates: start: 20090601
  3. ALCOWIPES [Suspect]
  4. BACLOFEN [Concomitant]
     Indication: MUSCULOSKELETAL STIFFNESS
     Dosage: 10 MG, TID
     Dates: start: 20080401
  5. ZOCOR [Concomitant]
     Dosage: 10 MG, UNK
  6. MULTI-VITAMIN [Concomitant]
  7. TRAMADOL HCL [Concomitant]
     Indication: HEADACHE
     Dosage: 50 MG, PRN
     Dates: start: 20110101
  8. LEVOTHYROXINE SODIUM [Concomitant]
     Dosage: 25 ?G, UNK
  9. TRAZODONE HCL [Concomitant]
     Indication: INSOMNIA
     Dosage: 50 MG, UNK
     Dates: start: 20110101
  10. BETASERON [Suspect]
     Indication: MULTIPLE SCLEROSIS
     Dosage: 0.25 MG, QOD
     Route: 058
     Dates: start: 20060101

REACTIONS (2)
  - INJECTION SITE INFECTION [None]
  - SCAR [None]
